FAERS Safety Report 5640541-2 (Version None)
Quarter: 2008Q1

REPORT INFORMATION
  Report Type: 
  Country: None (occurrence: None)
  Receive Date: 20080131
  Receipt Date: 20071217
  Transmission Date: 20080703
  Serious: No
  Sender: FDA-Public Use
  Company Number: 163-21880-07110495

PATIENT
  Age: 60 Year
  Sex: Male

DRUGS (7)
  1. REVLIMID [Suspect]
     Indication: MULTIPLE MYELOMA
     Dosage: 25 MG, 1 IN 1 D, ORAL
     Route: 048
     Dates: start: 20070914
  2. DEXAMETHASONE TAB [Suspect]
     Indication: DRUG USE FOR UNKNOWN INDICATION
     Dosage: WEEKLY
  3. ALLOPURINOL [Concomitant]
  4. LIPITOR [Concomitant]
  5. MICARDIS HCT [Concomitant]
  6. PLENDIL [Concomitant]
  7. TOPROL-XL [Concomitant]

REACTIONS (7)
  - AGEUSIA [None]
  - BLOOD ELECTROLYTES DECREASED [None]
  - DIZZINESS [None]
  - DYSGEUSIA [None]
  - FOLLICULITIS [None]
  - MUSCLE SPASMS [None]
  - SWELLING [None]
